FAERS Safety Report 5877006-9 (Version None)
Quarter: 2008Q3

REPORT INFORMATION
  Report Type: 
  Country: None (occurrence: None)
  Receive Date: 20080910
  Receipt Date: 20080829
  Transmission Date: 20090109
  Serious: Yes (Other)
  Sender: FDA-Public Use
  Company Number: DE-PFIZER INC-2008073537

PATIENT
  Sex: Female

DRUGS (2)
  1. LYRICA [Suspect]
     Indication: SCIATICA
     Route: 048
  2. LYRICA [Suspect]
     Indication: NEURALGIA

REACTIONS (1)
  - LIVER INJURY [None]
